FAERS Safety Report 5839608-5 (Version None)
Quarter: 2008Q3

REPORT INFORMATION
  Report Type: 
  Country: None (occurrence: None)
  Receive Date: 20080811
  Receipt Date: 20080731
  Transmission Date: 20090109
  Serious: Yes (Other)
  Sender: FDA-Public Use
  Company Number: US-JNJFOC-20080800797

PATIENT
  Sex: Male
  Weight: 79.38 kg

DRUGS (17)
  1. DURAGESIC-100 [Suspect]
     Route: 062
  2. DURAGESIC-100 [Suspect]
     Route: 062
  3. DURAGESIC-100 [Suspect]
     Dosage: 1X 100 UG/HR AND 1X 50 UG/HR PATCHES
     Route: 062
  4. DURAGESIC-100 [Suspect]
     Route: 062
  5. DURAGESIC-100 [Suspect]
     Route: 062
  6. DURAGESIC-100 [Suspect]
     Route: 062
  7. DURAGESIC-100 [Suspect]
     Indication: PAIN
     Route: 062
  8. TOPROL-XL [Concomitant]
     Indication: CARDIAC DISORDER
     Route: 048
  9. NORVASC [Concomitant]
     Indication: CARDIAC DISORDER
     Route: 048
  10. NEURONTIN [Concomitant]
     Indication: PAIN
     Route: 048
  11. ACTOS [Concomitant]
     Indication: DIABETES MELLITUS
     Route: 048
  12. DIOVAN [Concomitant]
     Indication: CARDIAC DISORDER
     Route: 048
  13. LIPITOR [Concomitant]
     Indication: HYPERCHOLESTEROLAEMIA
     Route: 048
  14. TETRACYCLINE [Concomitant]
     Indication: ROSACEA
     Route: 048
  15. ACIPHEX [Concomitant]
     Indication: GASTROINTESTINAL DISORDER
     Route: 048
  16. AMITRIPTYLINE HCL [Concomitant]
     Indication: DRUG USE FOR UNKNOWN INDICATION
     Route: 048
  17. NOVOLIN [Concomitant]
     Indication: DIABETES MELLITUS
     Dosage: 30/70: 12 UNITS IN AM, 7 UNITS IN PM
     Route: 065

REACTIONS (4)
  - DRUG EFFECT DECREASED [None]
  - HYPOTHYROIDISM [None]
  - INCORRECT DRUG ADMINISTRATION DURATION [None]
  - SEDATION [None]
